FAERS Safety Report 6688145-7 (Version None)
Quarter: 2010Q2

REPORT INFORMATION
  Report Type: 
  Country: None (occurrence: None)
  Receive Date: 20100420
  Receipt Date: 20100408
  Transmission Date: 20101027
  Serious: Yes (Life-Threatening, Hospitalization)
  Sender: FDA-Public Use
  Company Number: JP-PFIZER INC-2010027746

PATIENT
  Age: 67 Year
  Sex: Male
  Weight: 60 kg

DRUGS (16)
  1. SUNITINIB MALATE [Suspect]
     Indication: RENAL CELL CARCINOMA
     Dosage: 37.5 MG, 1X/DAY
     Route: 048
     Dates: start: 20090618
  2. OXYCONTIN [Suspect]
     Dosage: UNK
     Route: 048
     Dates: start: 20091002
  3. SELBEX [Concomitant]
     Dosage: UNK
     Route: 048
  4. MICARDIS HCT [Concomitant]
     Dosage: UNK
     Route: 048
  5. LAC B [Concomitant]
     Dosage: UNK
     Route: 048
  6. DASEN [Concomitant]
     Dosage: UNK
     Route: 048
  7. MUCODYNE [Concomitant]
     Dosage: UNK
     Route: 048
  8. BROTIZOLAM [Concomitant]
     Dosage: UNK
     Route: 048
  9. NAPROXEN [Concomitant]
     Dosage: UNK
     Route: 048
  10. CODEINE PHOSPHATE [Concomitant]
     Dosage: UNK
     Route: 048
     Dates: end: 20090717
  11. PURSENNID [Concomitant]
     Dosage: UNK
     Route: 048
  12. TAKEPRON [Concomitant]
     Dosage: UNK
     Route: 048
  13. ALLOPURINOL [Concomitant]
     Dosage: UNK
     Route: 048
  14. CEFAZOLIN SODIUM [Concomitant]
     Route: 042
     Dates: start: 20091026, end: 20091102
  15. CYTOTEC [Concomitant]
     Dosage: UNK
     Route: 048
     Dates: start: 20091102
  16. NORVASC [Concomitant]
     Dosage: UNK
     Route: 048
     Dates: start: 20091002

REACTIONS (2)
  - ILEUS [None]
  - INTERSTITIAL LUNG DISEASE [None]
